FAERS Safety Report 10381303 (Version 1)
Quarter: 2014Q3

REPORT INFORMATION
  Report Type: Spontaneous
  Country: US (occurrence: None)
  Receive Date: 20140812
  Receipt Date: 20140812
  Transmission Date: 20150326
  Serious: No
  Sender: FDA-Public Use
  Company Number: None

PATIENT
  Age: 51 Year
  Sex: Male
  Weight: 76.2 kg

DRUGS (2)
  1. OXYCODONE [Suspect]
     Active Substance: OXYCODONE
     Indication: NECK SURGERY
     Dates: start: 20140710, end: 20140808
  2. OXYCODONE [Suspect]
     Active Substance: OXYCODONE
     Indication: SURGERY
     Dates: start: 20140710, end: 20140808

REACTIONS (7)
  - Malaise [None]
  - Product quality issue [None]
  - Abdominal pain upper [None]
  - Product tampering [None]
  - Abdominal discomfort [None]
  - Pharyngeal oedema [None]
  - Throat tightness [None]

NARRATIVE: CASE EVENT DATE: 20140723
